FAERS Safety Report 9925403 (Version 2)
Quarter: 2014Q1

REPORT INFORMATION
  Report Type: Spontaneous
  Country: GR (occurrence: GR)
  Receive Date: 20140226
  Receipt Date: 20140321
  Transmission Date: 20141002
  Serious: Yes (Death)
  Sender: FDA-Public Use
  Company Number: GR-CELGENEUS-066-21880-14021799

PATIENT
  Age: 79 Year
  Sex: Male

DRUGS (4)
  1. REVLIMID [Suspect]
     Indication: PLASMA CELL MYELOMA
     Route: 048
     Dates: start: 20120816
  2. REVLIMID [Suspect]
     Route: 048
     Dates: start: 20130704
  3. REVLIMID [Suspect]
     Route: 048
     Dates: start: 20130823
  4. REVLIMID [Suspect]
     Route: 048
     Dates: start: 20131018

REACTIONS (1)
  - Death [Fatal]
